FAERS Safety Report 6306954-0 (Version None)
Quarter: 2009Q3

REPORT INFORMATION
  Report Type: 
  Country: None (occurrence: None)
  Receive Date: 20090810
  Receipt Date: 20090724
  Transmission Date: 20100115
  Serious: Yes (Hospitalization)
  Sender: FDA-Public Use
  Company Number: 2009002251

PATIENT
  Age: 59 Year
  Sex: Female

DRUGS (5)
  1. ERLOTINIB (ERLOTINIB) (TABLET) (ERLOTINIB) [Suspect]
     Indication: LUNG NEOPLASM MALIGNANT
     Dosage: (150 MG,QD),ORAL
     Route: 048
     Dates: start: 20090629
  2. TAXOTERE [Suspect]
     Dosage: (150 MG/KG),INTRAVENOUS
     Route: 042
     Dates: start: 20090626
  3. CARVEDILOL [Concomitant]
  4. GRANULOKINE [Concomitant]
  5. BROMAZEPAM (BROMAZEPAM) [Concomitant]

REACTIONS (1)
  - ATRIAL FIBRILLATION [None]
